FAERS Safety Report 8271563 (Version 2)
Quarter: 2012Q4

REPORT INFORMATION
  Report Type: Spontaneous
  Country: US (occurrence: None)
  Receive Date: 20111122
  Receipt Date: 20120426
  Transmission Date: 20130627
  Serious: Yes (Other)
  Sender: FDA-Public Use
  Company Number: PHHY2011US70102

PATIENT
  Age: 51 Year
  Sex: Female
  Weight: 90.7 kg

DRUGS (9)
  1. GILENYA [Suspect]
     Indication: MULTIPLE SCLEROSIS
     Route: 048
  2. ATENOLOL [Concomitant]
  3. GABAPENTIN [Concomitant]
  4. BACLOFEN [Concomitant]
  5. LAMICTAL [Concomitant]
  6. ONE A DAY (CYANOCOBALAMIN, ERGOCALCIFEROL, NICOTINAMIDE, PYRIDOXINE HYDROCHLORIDE, RETINOL, RIBOFLAV [Concomitant]
  7. ASAL (ARACGUS GTOIGAEA OIL, ARACHIS OIL, ASCORBIC ACID, GLYCERYL MONOSTEARATE, LECITHINUM SOYA, MANG [Concomitant]
  8. ALLEGRA [Concomitant]
  9. MUCINEX DM (DEXTROMETHORPHAN HYDROBROMIDE, GUAIFENESIN) [Concomitant]

REACTIONS (2)
  - HERPES ZOSTER [None]
  - COUGH [None]
